FAERS Safety Report 16709384 (Version 1)
Quarter: 2019Q3

REPORT INFORMATION
  Report Type: Spontaneous
  Country: CZ (occurrence: CZ)
  Receive Date: 20190816
  Receipt Date: 20190816
  Transmission Date: 20191004
  Serious: Yes (Other)
  Sender: FDA-Public Use
  Company Number: CZ-ACCORD-151474

PATIENT
  Sex: Male

DRUGS (7)
  1. CAPECITABINE. [Concomitant]
     Active Substance: CAPECITABINE
     Indication: COLORECTAL CANCER
  2. IRINOTECAN [Suspect]
     Active Substance: IRINOTECAN
     Indication: COLORECTAL CANCER
  3. AFLIBERCEPT [Concomitant]
     Active Substance: AFLIBERCEPT
     Indication: COLORECTAL CANCER
  4. OXALIPLATIN. [Suspect]
     Active Substance: OXALIPLATIN
     Indication: COLORECTAL CANCER
  5. BEVACIZUMAB. [Concomitant]
     Active Substance: BEVACIZUMAB
     Indication: COLORECTAL CANCER
  6. FLUOROURACIL. [Suspect]
     Active Substance: FLUOROURACIL
     Indication: COLORECTAL CANCER
  7. FOLINIC ACID [Concomitant]
     Active Substance: LEUCOVORIN
     Indication: COLORECTAL CANCER

REACTIONS (5)
  - Thrombocytopenia [Unknown]
  - Neuropathy peripheral [Unknown]
  - Diarrhoea [Unknown]
  - Drug intolerance [Unknown]
  - Neutropenia [Unknown]
